FAERS Safety Report 10503955 (Version 2)
Quarter: 2014Q4

REPORT INFORMATION
  Report Type: Spontaneous
  Country: US (occurrence: US)
  Receive Date: 20141008
  Receipt Date: 20141008
  Transmission Date: 20150528
  Serious: No
  Sender: FDA-Public Use
  Company Number: US-BEH-2012031553

PATIENT
  Age: 56 Year
  Sex: Female
  Weight: 80 kg

DRUGS (36)
  1. PRIVIGEN [Suspect]
     Active Substance: HUMAN IMMUNOGLOBULIN G
     Dosage: ??-???-2008
     Route: 042
  2. PRIVIGEN [Suspect]
     Active Substance: HUMAN IMMUNOGLOBULIN G
     Indication: HYPOGLOBULINAEMIA
     Dosage: 30 GRAMS
     Route: 042
     Dates: start: 20120626
  3. NORVASC [Concomitant]
     Active Substance: AMLODIPINE BESYLATE
  4. ASTELIN [Concomitant]
     Active Substance: AZELASTINE HYDROCHLORIDE
  5. SYNTHROID [Concomitant]
     Active Substance: LEVOTHYROXINE SODIUM
  6. COREG [Concomitant]
     Active Substance: CARVEDILOL
  7. LIDOCAINE/PRILOCAINE [Concomitant]
     Indication: PREMEDICATION
  8. TERBINAFINE [Concomitant]
     Active Substance: TERBINAFINE
  9. LEVOTHYROXINE [Concomitant]
     Active Substance: LEVOTHYROXINE
  10. PRINIVIL [Concomitant]
     Active Substance: LISINOPRIL
  11. GLIMEPIRIDE. [Concomitant]
     Active Substance: GLIMEPIRIDE
  12. SODIUM CHLORIDE. [Concomitant]
     Active Substance: SODIUM CHLORIDE
  13. PRIVIGEN [Suspect]
     Active Substance: HUMAN IMMUNOGLOBULIN G
     Dosage: 30 GRAMS
     Route: 042
     Dates: start: 20120216
  14. PRIVIGEN [Suspect]
     Active Substance: HUMAN IMMUNOGLOBULIN G
     Route: 042
  15. PRIVIGEN [Suspect]
     Active Substance: HUMAN IMMUNOGLOBULIN G
     Route: 042
  16. METFORMIN HCL [Concomitant]
     Active Substance: METFORMIN HYDROCHLORIDE
  17. BENADRYL [Concomitant]
     Active Substance: DIPHENHYDRAMINE HYDROCHLORIDE
  18. ZYFLO [Concomitant]
     Active Substance: ZILEUTON
  19. CRESTOR [Concomitant]
     Active Substance: ROSUVASTATIN CALCIUM
  20. CALCIUM [Concomitant]
     Active Substance: CALCIUM
  21. LISINOPRIL. [Concomitant]
     Active Substance: LISINOPRIL
  22. LAMISIL [Concomitant]
     Active Substance: TERBINAFINE HYDROCHLORIDE
  23. PRIVIGEN [Suspect]
     Active Substance: HUMAN IMMUNOGLOBULIN G
     Route: 042
  24. ASPIRIN. [Concomitant]
     Active Substance: ASPIRIN
  25. ZYRTEC-D [Concomitant]
     Active Substance: CETIRIZINE HYDROCHLORIDE\PSEUDOEPHEDRINE HYDROCHLORIDE
  26. ACETAMINOPHEN. [Concomitant]
     Active Substance: ACETAMINOPHEN
  27. FLONASE [Concomitant]
     Active Substance: FLUTICASONE PROPIONATE
  28. VITAMIN D3 [Concomitant]
     Active Substance: CHOLECALCIFEROL
  29. MULTIVITAMIN [Concomitant]
     Active Substance: VITAMINS
  30. ALEVE [Concomitant]
     Active Substance: NAPROXEN SODIUM
  31. LAMISIL [Concomitant]
     Active Substance: TERBINAFINE HYDROCHLORIDE
  32. HYDROCHLOROTHIAZIDE. [Concomitant]
     Active Substance: HYDROCHLOROTHIAZIDE
  33. ZYFLO [Concomitant]
     Active Substance: ZILEUTON
  34. HEPARIN [Concomitant]
     Active Substance: HEPARIN SODIUM
  35. ALL OTHER THERAPEUTIC PRODUCTS [Concomitant]
     Active Substance: UNSPECIFIED INGREDIENT
  36. EPIPEN [Concomitant]
     Active Substance: EPINEPHRINE

REACTIONS (5)
  - Headache [Recovered/Resolved]
  - Headache [Unknown]
  - Headache [Recovered/Resolved]
  - Fatigue [Unknown]
  - Sinusitis [Unknown]

NARRATIVE: CASE EVENT DATE: 20120216
